FAERS Safety Report 5837436-8 (Version None)
Quarter: 2008Q3

REPORT INFORMATION
  Report Type: 
  Country: None (occurrence: None)
  Receive Date: 20080807
  Receipt Date: 20080805
  Transmission Date: 20090109
  Serious: Yes (Other)
  Sender: FDA-Public Use
  Company Number: US-BOEHRINGER INGELHEIM GMBH, GERMANY-2008-BP-11073BP

PATIENT
  Age: 1 Year
  Sex: Female
  Weight: 8 kg

DRUGS (1)
  1. CATAPRES-TTS-1 [Suspect]
     Indication: WITHDRAWAL SYNDROME
     Route: 062
     Dates: start: 20080608, end: 20080616

REACTIONS (5)
  - ABDOMINAL DISTENSION [None]
  - MEDICATION ERROR [None]
  - RESPIRATORY FAILURE [None]
  - SEPSIS [None]
  - SOMNOLENCE [None]
